FAERS Safety Report 7169166-7 (Version None)
Quarter: 2010Q4

REPORT INFORMATION
  Report Type: 
  Country: None (occurrence: None)
  Receive Date: 20101216
  Receipt Date: 20100118
  Transmission Date: 20110411
  Serious: No
  Sender: FDA-Public Use
  Company Number: US-AMGEN-KDL386546

PATIENT

DRUGS (4)
  1. ENBREL [Suspect]
     Indication: RHEUMATOID ARTHRITIS
     Dosage: UNK UNK, UNK
     Dates: start: 20090701
  2. ENBREL [Suspect]
     Indication: OSTEOARTHRITIS
  3. LEFLUNOMIDE [Concomitant]
     Dosage: UNK UNK, UNK
  4. SULFASALAZINE [Concomitant]
     Dosage: UNK UNK, UNK

REACTIONS (1)
  - JOINT SWELLING [None]
